FAERS Safety Report 11432367 (Version 1)
Quarter: 2015Q3

REPORT INFORMATION
  Report Type: Other
  Country: GB (occurrence: GB)
  Receive Date: 20150828
  Receipt Date: 20150828
  Transmission Date: 20151125
  Serious: Yes (Other)
  Sender: FDA-Public Use
  Company Number: GB-MYLANLABS-2015M1028184

PATIENT

DRUGS (9)
  1. ZINC [Concomitant]
     Active Substance: ZINC\ZINC CHLORIDE
  2. VITAMIN B COMPLEX [Concomitant]
     Active Substance: CYANOCOBALAMIN\DEXPANTHENOL\NIACINAMIDE\PYRIDOXINE HYDROCHLORIDE\RIBOFLAVIN 5^-PHOSPHATE SODIUM\THIAMINE HYDROCHLORIDE\VITAMIN B COMPLEX
  3. SALMETEROL [Concomitant]
     Active Substance: SALMETEROL
  4. GARLIC EXTRACT [Concomitant]
  5. BECOTIDE [Concomitant]
     Active Substance: BECLOMETHASONE DIPROPIONATE
  6. COD LIVER OIL [Concomitant]
     Active Substance: COD LIVER OIL
  7. VITAMIN C [Concomitant]
     Active Substance: ASCORBIC ACID
  8. AMLODIPINE [Suspect]
     Active Substance: AMLODIPINE BESYLATE
     Indication: BLOOD PRESSURE INCREASED
     Dosage: 5 MG, UNK
     Route: 048
     Dates: start: 20150512, end: 20150630
  9. PROTELOS [Concomitant]
     Active Substance: STRONTIUM RANELATE

REACTIONS (4)
  - Musculoskeletal stiffness [Not Recovered/Not Resolved]
  - Discomfort [Not Recovered/Not Resolved]
  - Pain in extremity [Not Recovered/Not Resolved]
  - Arthralgia [Not Recovered/Not Resolved]

NARRATIVE: CASE EVENT DATE: 20150518
